FAERS Safety Report 9166494 (Version 1)
Quarter: 2013Q1

REPORT INFORMATION
  Report Type: Spontaneous
  Country: US (occurrence: US)
  Receive Date: 20130315
  Receipt Date: 20130315
  Transmission Date: 20140127
  Serious: Yes (Other)
  Sender: FDA-Public Use
  Company Number: CHPA2010US05578

PATIENT
  Age: 82 Year
  Sex: Male
  Weight: 102.4 kg

DRUGS (4)
  1. PREVACID 24HR 15MG [Suspect]
     Indication: PROPHYLAXIS
     Dosage: 15 MG, BID
     Route: 048
     Dates: start: 201003
  2. ENABLEX [Concomitant]
     Route: 048
  3. WELLBUTRIN [Concomitant]
     Route: 048
  4. NUVIGIL [Concomitant]

REACTIONS (5)
  - Foreign body [Recovered/Resolved]
  - Overdose [Unknown]
  - Off label use [Unknown]
  - Incorrect drug administration duration [Unknown]
  - Wrong technique in drug usage process [Unknown]
